FAERS Safety Report 24357721 (Version 2)
Quarter: 2024Q4

REPORT INFORMATION
  Report Type: Report from Study
  Country: CA (occurrence: CA)
  Receive Date: 20240924
  Receipt Date: 20241001
  Transmission Date: 20250114
  Serious: Yes (Other)
  Sender: TAKEDA
  Company Number: CA-TAKEDA-2024TUS092242

PATIENT
  Sex: Male

DRUGS (12)
  1. VEDOLIZUMAB [Suspect]
     Active Substance: VEDOLIZUMAB
     Indication: Colitis ulcerative
     Dosage: 300 MILLIGRAM
     Route: 042
     Dates: start: 20200724
  2. IMURAN [Concomitant]
     Active Substance: AZATHIOPRINE
     Dosage: 150 MILLIGRAM, QD
  3. ASACOL [Concomitant]
     Active Substance: MESALAMINE
     Dosage: 3200 MILLIGRAM, QD
  4. DAPAGLIFLOZIN [Concomitant]
     Active Substance: DAPAGLIFLOZIN
     Dosage: 10 MILLIGRAM
  5. HYDROCHLOROTHIAZIDE [Concomitant]
     Active Substance: HYDROCHLOROTHIAZIDE
     Dosage: 25 MILLIGRAM
  6. RAMIPRIL [Concomitant]
     Active Substance: RAMIPRIL
     Dosage: 20 MILLIGRAM
  7. ROSUVASTATIN [Concomitant]
     Active Substance: ROSUVASTATIN
     Dosage: 10 MILLIGRAM
  8. AMLODIPINE [Concomitant]
     Active Substance: AMLODIPINE BESYLATE
     Dosage: UNK
  9. OMEGA 3 [Concomitant]
     Active Substance: CAPSAICIN
     Dosage: 4800 MILLIGRAM
  10. VITAMIN D NOS [Concomitant]
     Active Substance: CHOLECALCIFEROL\ERGOCALCIFEROL
     Dosage: 1000 INTERNATIONAL UNIT
  11. PENTASA [Concomitant]
     Active Substance: MESALAMINE
     Dosage: 2000 MILLIGRAM
     Route: 048
  12. Salofalk [Concomitant]
     Dosage: UNK

REACTIONS (3)
  - Proctitis ulcerative [Unknown]
  - Large intestine polyp [Unknown]
  - Pseudopolyp [Unknown]
